FAERS Safety Report 4989406-X (Version None)
Quarter: 2006Q2

REPORT INFORMATION
  Report Type: 
  Country: None (occurrence: None)
  Receive Date: 20060425
  Receipt Date: 20060410
  Transmission Date: 20061013
  Serious: Yes (Other)
  Sender: FDA-Public Use
  Company Number: 2006051145

PATIENT
  Age: 83 Year
  Sex: Male

DRUGS (1)
  1. DETROL LA [Suspect]
     Indication: ILL-DEFINED DISORDER
     Dates: start: 20060101

REACTIONS (5)
  - BLADDER SPASM [None]
  - HYPERTONIC BLADDER [None]
  - MEMORY IMPAIRMENT [None]
  - RADIOTHERAPY [None]
  - TREATMENT NONCOMPLIANCE [None]
